FAERS Safety Report 25971198 (Version 1)
Quarter: 2025Q4

REPORT INFORMATION
  Report Type: Spontaneous
  Country: US (occurrence: US)
  Receive Date: 20251028
  Receipt Date: 20251028
  Transmission Date: 20260117
  Serious: No
  Sender: ELI LILLY AND COMPANY
  Company Number: US-ELI_LILLY_AND_COMPANY-US202510015381

PATIENT
  Age: 45 Year
  Sex: Female

DRUGS (2)
  1. ZEPBOUND [Suspect]
     Active Substance: TIRZEPATIDE
     Indication: Product used for unknown indication
     Dosage: 15 MG, UNKNOWN
     Route: 058
     Dates: start: 20241001
  2. ZEPBOUND [Suspect]
     Active Substance: TIRZEPATIDE
     Dosage: 7.5 MG, UNKNOWN
     Route: 058

REACTIONS (4)
  - Headache [Unknown]
  - Pain [Unknown]
  - Heart rate increased [Unknown]
  - Nausea [Unknown]
